FAERS Safety Report 11905031 (Version 7)
Quarter: 2016Q3

REPORT INFORMATION
  Report Type: Report from Study
  Country: JP (occurrence: JP)
  Receive Date: 20160109
  Receipt Date: 20160708
  Transmission Date: 20161109
  Serious: Yes (Life-Threatening)
  Sender: FDA-Public Use
  Company Number: JP-AMGEN-JPNCT2016002088

PATIENT
  Age: 67 Year
  Sex: Male

DRUGS (37)
  1. TRANSAMIN [Concomitant]
     Active Substance: TRANEXAMIC ACID
     Dosage: 250 MG, UNK
     Route: 048
     Dates: start: 20151030, end: 20151106
  2. HYDROCORTISONE SODIUM PHOSPHATE [Concomitant]
     Active Substance: HYDROCORTISONE SODIUM PHOSPHATE
     Dosage: 100 MG, UNK
     Route: 042
     Dates: start: 20151031, end: 20151226
  3. LUPRAC [Concomitant]
     Active Substance: TORSEMIDE
     Dosage: 4-8 MG, UNK
     Route: 048
     Dates: start: 20151107, end: 20151225
  4. WHITE PETROLATUM [Concomitant]
     Active Substance: PETROLATUM
     Dosage: 100 G, UNK
     Route: 062
     Dates: start: 20151015, end: 20160123
  5. JUZENTAIHOTO [Concomitant]
     Dosage: 2.5 G, UNK
     Route: 048
     Dates: start: 20150729, end: 20151106
  6. LEVOFLOXACIN. [Concomitant]
     Active Substance: LEVOFLOXACIN
     Dosage: 500 MG, UNK
     Route: 048
     Dates: start: 20151014, end: 20151128
  7. CALONAL [Concomitant]
     Active Substance: ACETAMINOPHEN
     Dosage: 400 MG, UNK
     Route: 048
     Dates: start: 20151103, end: 20160123
  8. CARFILZOMIB [Suspect]
     Active Substance: CARFILZOMIB
     Indication: PLASMA CELL MYELOMA
     Dosage: 56 MG/M2, PER CHEMO REGIM
     Route: 042
     Dates: start: 20151028, end: 20151224
  9. SULFAMETHOXAZOLE AND TRIMETHOPRIM [Concomitant]
     Active Substance: SULFAMETHOXAZOLE\TRIMETHOPRIM
     Dosage: 1 G, UNK
     Route: 048
     Dates: start: 20150110, end: 20160122
  10. EMPYNASE P [Concomitant]
     Active Substance: PROTEIN
     Dosage: 18000 IU, UNK
     Route: 048
     Dates: start: 20151030, end: 20151106
  11. ZINC OXIDE. [Concomitant]
     Active Substance: ZINC OXIDE
     Dosage: 50 G, UNK
     Route: 062
     Dates: start: 20151130, end: 20160123
  12. FUROSEMIDE. [Concomitant]
     Active Substance: FUROSEMIDE
     Dosage: 20 MG, UNK
     Route: 042
     Dates: start: 20151106, end: 20160123
  13. FILGRASTIM [Concomitant]
     Active Substance: FILGRASTIM
     Indication: PRODUCT USED FOR UNKNOWN INDICATION
     Dosage: 75 MUG, UNK
     Route: 058
     Dates: start: 20151211, end: 20151213
  14. ITRIZOLE [Concomitant]
     Active Substance: ITRACONAZOLE
     Dosage: 200 MG, UNK
     Route: 048
     Dates: start: 20151006, end: 20160121
  15. PREDONINE [Concomitant]
     Active Substance: PREDNISOLONE\PREDNISOLONE ACETATE\PREDNISOLONE SODIUM SUCCINATE
     Dosage: 10-20 MG, UNK
     Route: 048
     Dates: start: 20151127, end: 20160104
  16. FUNGUARD [Concomitant]
     Active Substance: MICAFUNGIN SODIUM
     Dosage: 150 MG, UNK
     Route: 042
     Dates: start: 20151105, end: 20151116
  17. FEBURIC [Concomitant]
     Active Substance: FEBUXOSTAT
     Dosage: 10-20 MG, UNK
     Route: 048
     Dates: start: 20151127, end: 20151225
  18. MEROPENEM. [Concomitant]
     Active Substance: MEROPENEM
     Dosage: 1 G, UNK
     Route: 042
     Dates: start: 20151031, end: 20160123
  19. MEYLON [Concomitant]
     Active Substance: SODIUM BICARBONATE
     Dosage: 20 ML, UNK
     Route: 042
     Dates: start: 20151224, end: 20151225
  20. REFLEX [Concomitant]
     Active Substance: MIRTAZAPINE
     Dosage: 7.5 TO 15 MG, UNK
     Route: 048
     Dates: start: 20151201, end: 20151222
  21. ELNEOPA NO.2 [Concomitant]
     Active Substance: AMINO ACIDS\CARBOHYDRATES\ELECTROLYTES NOS\VITAMINS
     Dosage: 500 ML, UNK
     Route: 042
     Dates: start: 20151223, end: 20160101
  22. ARTIST [Concomitant]
     Active Substance: CARVEDILOL
     Dosage: 2.5-10 MG UNK
     Route: 048
     Dates: start: 20141015, end: 20160123
  23. BAYASPIRIN [Concomitant]
     Active Substance: ASPIRIN
     Dosage: 100 MG, UNK
     Route: 048
     Dates: start: 20150107, end: 20151103
  24. PILSICAINIDE [Concomitant]
     Active Substance: PILSICAINIDE
     Dosage: 50 MG, UNK
     Route: 048
     Dates: start: 20150822, end: 20160123
  25. KENEI G [Concomitant]
     Active Substance: GLYCERIN
     Dosage: 60 ML, UNK
     Route: 054
     Dates: start: 20151112, end: 20160123
  26. VERAPAMIL [Concomitant]
     Active Substance: VERAPAMIL HYDROCHLORIDE
     Dosage: 5 MG, UNK
     Route: 042
     Dates: start: 20151114, end: 20151114
  27. ASPARA POTASSIUM [Concomitant]
     Active Substance: POTASSIUM ASPARTATE
     Dosage: 10 TO 20 MEQ, 600 MG UNK
     Dates: start: 20151027, end: 20160123
  28. QUETIAPINE. [Concomitant]
     Active Substance: QUETIAPINE
     Dosage: 25 MG, UNK
     Route: 048
     Dates: start: 20151223, end: 20160123
  29. ZOLPIDEM TARTRATE. [Concomitant]
     Active Substance: ZOLPIDEM TARTRATE
     Dosage: 5 MG, UNK
     Route: 048
     Dates: start: 20151130, end: 20160123
  30. SOLDEM 1 [Concomitant]
     Active Substance: DEXTROSE\SODIUM CHLORIDE\SODIUM LACTATE
     Dosage: 500 ML, UNK
     Route: 042
     Dates: start: 20151027, end: 20151227
  31. MILTAX [Concomitant]
     Active Substance: VIDARABINE
     Dosage: 30 MG, UNK
     Route: 062
     Dates: start: 20151114, end: 20160123
  32. PIARLE [Concomitant]
     Dosage: 20 ML, UNK
     Route: 048
     Dates: start: 20151118, end: 20160123
  33. DEXAMETHASONE. [Suspect]
     Active Substance: DEXAMETHASONE
     Indication: PLASMA CELL MYELOMA
     Dosage: 20 MG, PER CHEMO REGIM
     Route: 048
     Dates: start: 20151028, end: 20151224
  34. VALACICLOVIR [Concomitant]
     Active Substance: VALACYCLOVIR HYDROCHLORIDE
     Dosage: 500 MG, UNK
     Route: 048
     Dates: start: 20150202, end: 20160122
  35. NEXIUM [Concomitant]
     Active Substance: ESOMEPRAZOLE MAGNESIUM
     Dosage: 10 MG, UNK
     Route: 048
     Dates: start: 20151021, end: 20151225
  36. POLARAMINE [Concomitant]
     Active Substance: DEXCHLORPHENIRAMINE MALEATE
     Dosage: 5 MG, UNK
     Route: 042
     Dates: start: 20151020, end: 20160123
  37. LECICARBON [Concomitant]
     Active Substance: SODIUM BICARBONATE\SODIUM PHOSPHATE, MONOBASIC
     Dosage: 1 UNK, UNK
     Route: 054
     Dates: start: 20151112, end: 20160123

REACTIONS (3)
  - Cardiac failure acute [Recovered/Resolved]
  - Acute lung injury [Recovered/Resolved]
  - Cardiac arrest [Recovered/Resolved]

NARRATIVE: CASE EVENT DATE: 20151226
